FAERS Safety Report 10236306 (Version 2)
Quarter: 2014Q2

REPORT INFORMATION
  Report Type: Spontaneous
  Country: DE (occurrence: DE)
  Receive Date: 20140613
  Receipt Date: 20140623
  Transmission Date: 20141212
  Serious: Yes (Hospitalization)
  Sender: FDA-Public Use
  Company Number: DE-ELI_LILLY_AND_COMPANY-DE201406001990

PATIENT
  Age: 61 Year
  Sex: Male
  Weight: 68 kg

DRUGS (14)
  1. CYMBALTA [Suspect]
     Indication: PAIN
     Dosage: 30 MG, QD
     Route: 048
     Dates: start: 20140315, end: 20140405
  2. ASS [Concomitant]
     Indication: PRODUCT USED FOR UNKNOWN INDICATION
     Dosage: 100, QD
     Route: 065
  3. CLOPIDOGREL [Concomitant]
     Indication: PRODUCT USED FOR UNKNOWN INDICATION
     Dosage: 75 MG, QD
     Route: 065
  4. METOPROLOL SUCCINATE [Concomitant]
     Dosage: 47.5 MG, QD
     Route: 065
  5. INSPRA                             /01613601/ [Concomitant]
     Dosage: 25 MG, QD
     Route: 065
  6. LONOLOX [Concomitant]
     Dosage: 2.5, QD
  7. ATORVASTATIN [Concomitant]
     Dosage: 20 MG, QD
     Route: 065
  8. OMEPRAZOLE [Concomitant]
     Dosage: 20 MG, QD
     Route: 065
  9. PREDNISOLONE [Concomitant]
     Dosage: 5 MG, QD
     Route: 065
  10. CALCIUM CITRATE [Concomitant]
     Dosage: 500 MG, EVERY TWO DAYS
  11. VIGANTOLETTEN [Concomitant]
     Dosage: 1000, QD
  12. OXYGESIC [Concomitant]
     Dosage: 5 MG, UNK
  13. TARGIN [Concomitant]
     Dosage: 10 MG/5 MG, QD
  14. METOCLOPRAMIDE HCL [Concomitant]

REACTIONS (5)
  - Arrhythmia [Recovering/Resolving]
  - Balance disorder [Recovering/Resolving]
  - Malaise [Recovering/Resolving]
  - Decreased appetite [Recovering/Resolving]
  - Somnolence [Recovering/Resolving]
